FAERS Safety Report 21917505 (Version 1)
Quarter: 2023Q1

REPORT INFORMATION
  Report Type: Spontaneous
  Country: SI (occurrence: SI)
  Receive Date: 20230126
  Receipt Date: 20230126
  Transmission Date: 20230418
  Serious: Yes (Death, Other)
  Sender: FDA-Public Use
  Company Number: SI-BAYER-2023A009141

PATIENT
  Age: 46 Year
  Sex: Female

DRUGS (4)
  1. RIVAROXABAN [Suspect]
     Active Substance: RIVAROXABAN
     Indication: Product used for unknown indication
     Route: 048
  2. AMIODARONE [Concomitant]
     Active Substance: AMIODARONE
  3. BISOPROLOL [Concomitant]
     Active Substance: BISOPROLOL
  4. PANTOPRAZOLE [Concomitant]
     Active Substance: PANTOPRAZOLE

REACTIONS (10)
  - Atrio-oesophageal fistula [Fatal]
  - Haematemesis [Fatal]
  - Loss of consciousness [Fatal]
  - Impaired gastric emptying [Fatal]
  - Gastrointestinal haemorrhage [Fatal]
  - Blood pressure decreased [Fatal]
  - Pulseless electrical activity [Fatal]
  - Cerebral artery thrombosis [Unknown]
  - Splenic infarction [Unknown]
  - Renal infarct [Unknown]
